FAERS Safety Report 10408224 (Version 2)
Quarter: 2014Q3

REPORT INFORMATION
  Report Type: Spontaneous
  Country: CN (occurrence: CN)
  Receive Date: 20140826
  Receipt Date: 20140826
  Transmission Date: 20150326
  Serious: Yes (Life-Threatening, Hospitalization, Other)
  Sender: FDA-Public Use
  Company Number: CN-ROCHE-1428527

PATIENT
  Age: 50 Year
  Sex: Male

DRUGS (2)
  1. RIBAVIRIN. [Suspect]
     Active Substance: RIBAVIRIN
     Indication: HEPATITIS C
     Route: 048
  2. PEGASYS [Suspect]
     Active Substance: PEGINTERFERON ALFA-2A
     Indication: HEPATITIS C
     Route: 058
     Dates: start: 20140630, end: 20140630

REACTIONS (15)
  - Abdominal discomfort [Unknown]
  - Dizziness [Unknown]
  - Asthenia [Unknown]
  - Upper gastrointestinal haemorrhage [Unknown]
  - Pyrexia [Unknown]
  - Blood triglycerides increased [Unknown]
  - Shock haemorrhagic [Unknown]
  - Gastric ulcer [Unknown]
  - Lung infection [Unknown]
  - Anaemia [Unknown]
  - Hypoalbuminaemia [Unknown]
  - Chronic gastritis [Unknown]
  - Electrolyte imbalance [Unknown]
  - Gastric haemorrhage [Recovering/Resolving]
  - Melaena [Unknown]

NARRATIVE: CASE EVENT DATE: 20140630
